FAERS Safety Report 5082738-9 (Version None)
Quarter: 2006Q3

REPORT INFORMATION
  Report Type: 
  Country: None (occurrence: None)
  Receive Date: 20060816
  Receipt Date: 20060816
  Transmission Date: 20061208
  Serious: Yes (Hospitalization)
  Sender: FDA-Public Use
  Company Number: None

PATIENT
  Age: 72 Year
  Sex: Male

DRUGS (8)
  1. BERLOX [Suspect]
     Indication: CHRONIC LYMPHOCYTIC LEUKAEMIA
     Dosage: 30 MG Q 3 WEEKS SQ
     Route: 058
     Dates: start: 20060515, end: 20060802
  2. BACTRIM DS [Concomitant]
  3. ALLOPURINOL [Concomitant]
  4. PROTONIX [Concomitant]
  5. DIOVAN [Concomitant]
  6. TOPROL-XL [Concomitant]
  7. DECADRON [Concomitant]
  8. MACROBID [Concomitant]

REACTIONS (2)
  - DISEASE RECURRENCE [None]
  - IDIOPATHIC THROMBOCYTOPENIC PURPURA [None]
